FAERS Safety Report 24749169 (Version 2)
Quarter: 2024Q4

REPORT INFORMATION
  Report Type: Spontaneous
  Country: SE (occurrence: SE)
  Receive Date: 20241218
  Receipt Date: 20241230
  Transmission Date: 20250114
  Serious: Yes (Hospitalization)
  Sender: AMGEN
  Company Number: SE-AMGEN-SWESP2024244721

PATIENT

DRUGS (3)
  1. ADALIMUMAB [Suspect]
     Active Substance: ADALIMUMAB
     Indication: Crohn^s disease
     Dosage: UNK
     Route: 058
  2. ADALIMUMAB [Suspect]
     Active Substance: ADALIMUMAB
     Indication: Colitis ulcerative
  3. ADALIMUMAB [Suspect]
     Active Substance: ADALIMUMAB
     Indication: Inflammatory bowel disease

REACTIONS (14)
  - Meningitis [Unknown]
  - COVID-19 [Unknown]
  - Arthritis bacterial [Unknown]
  - Gastroenteritis [Unknown]
  - Clostridium difficile infection [Unknown]
  - Peritonitis [Unknown]
  - Viral infection [Unknown]
  - Cytomegalovirus infection [Unknown]
  - Sepsis [Unknown]
  - Bacterial infection [Unknown]
  - Fungal infection [Unknown]
  - Upper respiratory tract infection [Unknown]
  - Skin infection [Unknown]
  - Pneumonia [Unknown]
